FAERS Safety Report 18966111 (Version 1)
Quarter: 2021Q1

REPORT INFORMATION
  Report Type: Spontaneous
  Country: VE (occurrence: VE)
  Receive Date: 20210303
  Receipt Date: 20210303
  Transmission Date: 20210420
  Serious: Yes (Death, Other)
  Sender: FDA-Public Use
  Company Number: NVSC2021VE049125

PATIENT
  Sex: Male

DRUGS (1)
  1. GLIVEC [Suspect]
     Active Substance: IMATINIB MESYLATE
     Indication: CHRONIC MYELOID LEUKAEMIA
     Dosage: 400 MG (4 OF 100 MG)
     Route: 065

REACTIONS (4)
  - Toxicity to various agents [Unknown]
  - Death [Fatal]
  - Haemoglobin abnormal [Unknown]
  - Platelet count abnormal [Unknown]
